FAERS Safety Report 7329793 (Version 6)
Quarter: 2013Q4

REPORT INFORMATION
  Report Type: Spontaneous
  Country: US (occurrence: US)
  Receive Date: 20100324
  Receipt Date: 20131113
  Transmission Date: 20140711
  Serious: Yes (Hospitalization)
  Sender: FDA-Public Use
  Company Number: US-BAYER-201017015NA

PATIENT
  Age: 19 Year
  Sex: Female
  Weight: 61.22 kg

DRUGS (14)
  1. YAZ [Suspect]
     Indication: PREMENSTRUAL SYNDROME
     Route: 048
     Dates: start: 20090304, end: 20091230
  2. YAZ [Suspect]
     Indication: ACNE
  3. YAZ [Suspect]
     Indication: CONTRACEPTION
  4. YAZ [Suspect]
     Indication: PREMENSTRUAL DYSPHORIC DISORDER
  5. LEXAPRO [Concomitant]
     Dosage: 20 MG, UNK
  6. VIRAL VACCINES [Concomitant]
     Dosage: UNK
     Dates: start: 20080723
  7. VIRAL VACCINES [Concomitant]
     Dosage: UNK
     Dates: start: 20080924
  8. VIRAL VACCINES [Concomitant]
     Dosage: UNK
     Dates: start: 20081231
  9. CLINDAMYCIN [Concomitant]
     Dosage: UNK
  10. AMOXICILLIN [Concomitant]
     Dosage: 500 MG CAPSULES, 2 DISPENSED
  11. CELEXA [Concomitant]
     Dosage: 20 MG, UNK
  12. PENICILLIN VK [Concomitant]
     Dosage: 500 MG, 40 DISPENSED
  13. PLAVIX [Concomitant]
     Dosage: 75 MG, DAILY
  14. ZOCOR [Concomitant]
     Dosage: 20 MG, QHS

REACTIONS (4)
  - Cerebrovascular accident [Unknown]
  - Headache [Unknown]
  - Visual impairment [Unknown]
  - Atrial septal defect [None]
